FAERS Safety Report 21251198 (Version 1)
Quarter: 2022Q3

REPORT INFORMATION
  Report Type: Spontaneous
  Country: CA (occurrence: CA)
  Receive Date: 20220825
  Receipt Date: 20220825
  Transmission Date: 20221027
  Serious: Yes (Disabling)
  Sender: FDA-Public Use
  Company Number: CA-BAXTER-2022BAX017974

PATIENT
  Age: 12 Year
  Sex: Male
  Weight: 55 kg

DRUGS (5)
  1. METRONIDAZOLE [Suspect]
     Active Substance: METRONIDAZOLE
     Indication: Brain empyema
     Dosage: 500 MILLIGRAM (MG), ONCE EVERY SIX HOURS (DOSAGE FORM: NOT SPECIFIED AND THERAPY DURATION: 16 DAYS)
     Route: 042
  2. CEFTRIAXONE SODIUM [Concomitant]
     Active Substance: CEFTRIAXONE SODIUM
     Dosage: (DOSAGE FORM: NOT SPECIFIED)
     Route: 065
  3. MEROPENEM [Concomitant]
     Active Substance: MEROPENEM
     Dosage: (DOSAGE FORM: POWDER FOR SOLUTION INTRAVENOUS)
     Route: 065
  4. PENICILLIN G [Concomitant]
     Active Substance: PENICILLIN G
     Dosage: (DOSAGE FORM: NOT SPECIFIED)
     Route: 065
  5. VANCOMYCIN [Concomitant]
     Active Substance: VANCOMYCIN
     Dosage: (DOSAGE FORM: NOT SPECIFIED)
     Route: 065

REACTIONS (5)
  - Burning sensation [Unknown]
  - Disease progression [Unknown]
  - Neuralgia [Unknown]
  - Sleep disorder [Unknown]
  - Paraesthesia [Unknown]
